FAERS Safety Report 14197548 (Version 3)
Quarter: 2017Q4

REPORT INFORMATION
  Report Type: Report from Study
  Country: None (occurrence: TR)
  Receive Date: 20171116
  Receipt Date: 20171211
  Transmission Date: 20180321
  Serious: Yes (Hospitalization)
  Sender: FDA-Public Use
  Company Number: TR-ABBVIE-17K-161-2164650-00

PATIENT
  Age: 69 Year
  Sex: Male
  Weight: 80 kg

DRUGS (11)
  1. CORASPIN [Concomitant]
     Active Substance: ASPIRIN
     Indication: ANTICOAGULANT THERAPY
     Route: 048
     Dates: start: 20171117
  2. DUODOPA [Suspect]
     Active Substance: CARBIDOPA\LEVODOPA
     Dosage: CONTINUOUS DOSE: 2.20 ML?EXTRA DOSE: 1.00 ML
     Route: 050
     Dates: start: 2017, end: 20171207
  3. MOTILIUM [Concomitant]
     Active Substance: DOMPERIDONE
     Indication: PARKINSON^S DISEASE
     Route: 048
     Dates: start: 20171117
  4. DUODOPA [Suspect]
     Active Substance: CARBIDOPA\LEVODOPA
     Dosage: CONTINUOUS DOSE: 2.50 ML?EXTRA DOSE: 1.20 ML
     Route: 050
     Dates: start: 20171207
  5. PLAQUENIL [Concomitant]
     Active Substance: HYDROXYCHLOROQUINE SULFATE
     Indication: ARTHRITIS
     Route: 048
     Dates: start: 20171117
  6. DUODOPA [Suspect]
     Active Substance: CARBIDOPA\LEVODOPA
     Dosage: MORNING DOSE: 6.00 ML?CONTINUOUS DOSE: 2.10 ML?EXTRA DOSE: 1.20 ML
     Route: 050
     Dates: start: 20171115, end: 2017
  7. PANTO [Concomitant]
     Active Substance: PANTOPRAZOLE SODIUM
     Indication: GASTRIC DISORDER
     Route: 048
     Dates: start: 20171117
  8. PANTO [Concomitant]
     Active Substance: PANTOPRAZOLE SODIUM
     Indication: PROPHYLAXIS
  9. CITOLES [Concomitant]
     Indication: PARKINSON^S DISEASE
     Route: 048
     Dates: start: 20171117
  10. DUODOPA [Suspect]
     Active Substance: CARBIDOPA\LEVODOPA
     Indication: PARKINSON^S DISEASE
     Dosage: MORNING DOSE: 6.00 ML??CONTINUOUS DOSE: 2.00 ML??EXTRA DOSE: 1.00 ML
     Route: 050
     Dates: start: 20171113, end: 20171115
  11. SEROQUEL [Concomitant]
     Active Substance: QUETIAPINE FUMARATE
     Indication: HALLUCINATION
     Route: 048
     Dates: start: 20171117

REACTIONS (5)
  - Somnolence [Recovered/Resolved]
  - Hypotension [Not Recovered/Not Resolved]
  - Wheezing [Recovered/Resolved]
  - Asthenia [Recovered/Resolved]
  - Blood albumin decreased [Not Recovered/Not Resolved]

NARRATIVE: CASE EVENT DATE: 20171114
